FAERS Safety Report 6998035-8 (Version None)
Quarter: 2010Q3

REPORT INFORMATION
  Report Type: 
  Country: None (occurrence: None)
  Receive Date: 20100920
  Receipt Date: 20070515
  Transmission Date: 20110219
  Serious: Yes (Other)
  Sender: FDA-Public Use
  Company Number: US-ASTRAZENECA-2006UW23948

PATIENT
  Sex: Male
  Weight: 64.9 kg

DRUGS (14)
  1. SEROQUEL [Suspect]
     Indication: SCHIZOPHRENIA
     Route: 048
  2. SEROQUEL [Suspect]
     Indication: DEPRESSION
     Route: 048
  3. RISPERDAL [Concomitant]
     Dosage: 4 MG
  4. ZYPREXA [Concomitant]
     Dosage: 10 MG
  5. TRIAZOLAM [Concomitant]
     Dosage: 25 MG
  6. AMBIEN [Concomitant]
     Indication: INSOMNIA
     Dosage: DOSE 10 MG AT NIGHT AS REQUIRED
     Route: 048
  7. BENZTROPINE MESYLATE [Concomitant]
     Dosage: DOSE 1 MG EVERY 6 HOURS AS REQUIRED
     Route: 048
  8. DIPHENHYDRAMINE HCL [Concomitant]
     Dosage: DOSE 25 MG EVERY 6 HOURS AS REQUIRED
     Route: 048
  9. DIPHENHYDRAMINE HCL [Concomitant]
     Dosage: DOSE 25MG ( 0.5 ML) EVERY 6 HOURS AS REQUIRED
     Route: 030
  10. TYLENOL [Concomitant]
     Indication: DISCOMFORT
     Dosage: DOSE 325MG ONE TO TWO EVERY 6 HOURS AS REQUIRED
     Route: 048
  11. TYLENOL [Concomitant]
     Indication: PYREXIA
     Dosage: DOSE 325MG ONE TO TWO EVERY 6 HOURS AS REQUIRED
     Route: 048
  12. GLUCOPHAGE [Concomitant]
     Indication: DIABETES MELLITUS
     Dosage: DOSE 100 MG TO 500 MG.
  13. ATIVAN [Concomitant]
     Indication: ANXIETY
     Dosage: DOSE 1 MG 2 MG EVERY 4 HOURS AS REQUIRED
     Route: 048
  14. ATIVAN [Concomitant]
     Indication: AGITATION
     Dosage: DOSE 1 MG 2 MG EVERY 4 HOURS AS REQUIRED
     Route: 048

REACTIONS (2)
  - DIABETES MELLITUS [None]
  - TARDIVE DYSKINESIA [None]
